FAERS Safety Report 7021646-0 (Version None)
Quarter: 2010Q3

REPORT INFORMATION
  Report Type: 
  Country: None (occurrence: None)
  Receive Date: 20100929
  Receipt Date: 20100923
  Transmission Date: 20110219
  Serious: Yes (Hospitalization, Other)
  Sender: FDA-Public Use
  Company Number: US-AMGEN-KDL305988

PATIENT
  Sex: Male
  Weight: 158.9 kg

DRUGS (15)
  1. ENBREL [Suspect]
     Indication: ANKYLOSING SPONDYLITIS
     Route: 058
     Dates: start: 20080723
  2. METHOTREXATE [Concomitant]
     Route: 048
     Dates: start: 20070207
  3. BETAPACE [Concomitant]
     Dates: start: 20100315
  4. DURAGESIC-100 [Concomitant]
     Route: 062
     Dates: start: 20080318
  5. EFFEXOR [Concomitant]
     Dates: start: 20100823
  6. LASIX [Concomitant]
     Dates: start: 20011129
  7. LYRICA [Concomitant]
     Dates: start: 20080630
  8. PREDNISONE [Concomitant]
     Dates: start: 20080508
  9. VITAMIN D [Concomitant]
     Dates: start: 20080128
  10. ANDROGEL [Concomitant]
     Dates: start: 20090217
  11. ATIVAN [Concomitant]
     Dates: start: 20100903
  12. AUGMENTIN '125' [Concomitant]
     Dates: start: 20080924
  13. CORTISPORIN [Concomitant]
     Route: 047
     Dates: start: 20100203
  14. METFORMIN [Concomitant]
     Dates: start: 20100205
  15. NEXIUM [Concomitant]
     Dates: start: 20081010

REACTIONS (6)
  - ASPARTATE AMINOTRANSFERASE INCREASED [None]
  - CELLULITIS [None]
  - GLUCOSE TOLERANCE IMPAIRED [None]
  - HOSPITALISATION [None]
  - LIMB INJURY [None]
  - TYPE 2 DIABETES MELLITUS [None]
